FAERS Safety Report 17123173 (Version 1)
Quarter: 2019Q4

REPORT INFORMATION
  Report Type: Spontaneous
  Country: DE (occurrence: DE)
  Receive Date: 20191206
  Receipt Date: 20191206
  Transmission Date: 20200122
  Serious: Yes (Disabling)
  Sender: FDA-Public Use
  Company Number: DE-US-PROVELL PHARMACEUTICALS LLC-9128198

PATIENT
  Sex: Female
  Weight: 75 kg

DRUGS (1)
  1. EUTHYROX 88 NF [Suspect]
     Active Substance: LEVOTHYROXINE SODIUM
     Indication: THYROID DISORDER
     Dates: start: 20190617, end: 20191106

REACTIONS (8)
  - Nausea [Unknown]
  - Arrhythmia [Recovering/Resolving]
  - Fatigue [Unknown]
  - Cardiac disorder [Unknown]
  - Heart rate increased [Recovering/Resolving]
  - Skin disorder [Recovering/Resolving]
  - Weight increased [Recovering/Resolving]
  - Asthma [Recovering/Resolving]
